FAERS Safety Report 8042386-5 (Version None)
Quarter: 2012Q1

REPORT INFORMATION
  Report Type: 
  Country: None (occurrence: None)
  Receive Date: 20120112
  Receipt Date: 20120106
  Transmission Date: 20120608
  Serious: Yes (Hospitalization)
  Sender: FDA-Public Use
  Company Number: DE-AMGEN-DEUSP2012001046

PATIENT
  Age: 65 Year
  Sex: Female
  Weight: 63 kg

DRUGS (7)
  1. NEULASTA [Concomitant]
     Indication: PRODUCT USED FOR UNKNOWN INDICATION
  2. DICLOFENAC [Concomitant]
     Indication: PRODUCT USED FOR UNKNOWN INDICATION
     Dosage: 291.2 MG, UNK
     Route: 048
     Dates: start: 20081201
  3. TOPOTECAN [Concomitant]
     Dosage: 1.25 MG, UNK
     Route: 042
     Dates: start: 20111212, end: 20111216
  4. SORAFENIB [Concomitant]
     Dosage: 800 MG, UNK
     Route: 048
     Dates: start: 20111217, end: 20111226
  5. METOPROLOL [Concomitant]
     Indication: HYPERTENSION
     Dosage: 100 MG, QD
     Route: 048
     Dates: start: 19950502
  6. TORSEMIDE [Concomitant]
     Indication: HYPERTENSION
     Dosage: 200 MG, UNK
     Route: 048
     Dates: start: 20111001
  7. ARANESP [Suspect]
     Indication: PRODUCT USED FOR UNKNOWN INDICATION

REACTIONS (1)
  - HAEMOGLOBIN ABNORMAL [None]
